FAERS Safety Report 10098972 (Version 1)
Quarter: 2014Q2

REPORT INFORMATION
  Report Type: Spontaneous
  Country: FR (occurrence: FR)
  Receive Date: 20140423
  Receipt Date: 20140423
  Transmission Date: 20141212
  Serious: Yes (Hospitalization)
  Sender: FDA-Public Use
  Company Number: PHHY2014FR047606

PATIENT
  Age: 67 Year
  Sex: Female

DRUGS (6)
  1. CARBOPLATIN SANDOZ [Suspect]
     Indication: OVARIAN CANCER
     Route: 042
     Dates: start: 20100507
  2. PACLITAXEL HOSPIRA [Suspect]
     Indication: OVARIAN CANCER
     Route: 042
     Dates: start: 20100507, end: 20100525
  3. ONDANSETRON AGUETTANT [Suspect]
     Indication: PREMEDICATION
     Dosage: 8 MG, UNK
     Route: 042
     Dates: start: 20100507
  4. METHYLPREDNISOLONE MAYNE PHARMA (BEN) [Suspect]
     Indication: PREMEDICATION
     Dosage: 120 MG, UNK
     Route: 042
     Dates: start: 20100507
  5. POLARAMINE [Suspect]
     Indication: PREMEDICATION
     Dosage: 1 DF, UNK
     Route: 042
     Dates: start: 20100507
  6. AZANTAC [Suspect]
     Indication: PREMEDICATION
     Dosage: 1 DF, UNK
     Route: 042
     Dates: start: 20100507

REACTIONS (1)
  - Colitis ischaemic [Recovered/Resolved]
